FAERS Safety Report 9284025 (Version 3)
Quarter: 2013Q3

REPORT INFORMATION
  Report Type: Spontaneous
  Country: US (occurrence: US)
  Receive Date: 20130510
  Receipt Date: 20130731
  Transmission Date: 20140515
  Serious: Yes (Hospitalization, Other)
  Sender: FDA-Public Use
  Company Number: US-BAYER-2013-056745

PATIENT
  Age: 23 Year
  Sex: Female
  Weight: 120.18 kg

DRUGS (11)
  1. YAZ [Suspect]
     Indication: CONTRACEPTION
     Dosage: UNK
     Dates: start: 2004
  2. YASMIN [Suspect]
  3. PAXIL [Concomitant]
     Dosage: UNK
     Dates: start: 2004
  4. ERYTHROMYCIN [Concomitant]
     Dosage: 500 MG, UNK
     Dates: start: 20031212
  5. MAXIFED-G [Concomitant]
     Dosage: UNK
     Dates: start: 20031212
  6. PROPOXYPHENE NAPSYLATE W/ACETAMINOPHENE [Concomitant]
     Dosage: 100-650
     Dates: start: 20040115
  7. PROPOXYPHENE NAPSYLATE W/ACETAMINOPHENE [Concomitant]
     Dosage: UNK
     Dates: start: 20040223
  8. AMOXICILLIN [Concomitant]
     Dosage: 500 MG, UNK
     Dates: start: 20040121
  9. NAPROXEN [Concomitant]
     Dosage: 500 MG, UNK
     Dates: start: 20040223
  10. PAXIL CR [Concomitant]
     Dosage: 12.5 MG, UNK
     Dates: start: 20040322
  11. ACETAMINOPHEN W/CODEINE [Concomitant]
     Dosage: #3
     Dates: start: 20041123

REACTIONS (7)
  - Deep vein thrombosis [None]
  - Deep vein thrombosis [None]
  - Deep vein thrombosis [None]
  - Deep vein thrombosis [None]
  - Deep vein thrombosis [None]
  - Thrombosis [None]
  - Thrombosis [None]
